FAERS Safety Report 9439894 (Version 1)
Quarter: 2013Q3

REPORT INFORMATION
  Report Type: Spontaneous
  Country: FR (occurrence: FR)
  Receive Date: 20130805
  Receipt Date: 20130805
  Transmission Date: 20140515
  Serious: Yes (Hospitalization)
  Sender: FDA-Public Use
  Company Number: FR-JNJFOC-20130713296

PATIENT
  Age: 11 Year
  Sex: Male

DRUGS (1)
  1. RISPERDAL [Suspect]
     Indication: SEDATION
     Route: 048
     Dates: start: 201306, end: 201306

REACTIONS (3)
  - Catatonia [Unknown]
  - Abnormal behaviour [Unknown]
  - Extrapyramidal disorder [Recovering/Resolving]
